FAERS Safety Report 24979208 (Version 2)
Quarter: 2025Q2

REPORT INFORMATION
  Report Type: Spontaneous
  Country: US (occurrence: US)
  Receive Date: 20250218
  Receipt Date: 20250403
  Transmission Date: 20250717
  Serious: No
  Sender: NOVARTIS
  Company Number: US-002147023-NVSC2025US023701

PATIENT
  Sex: Female

DRUGS (1)
  1. COSENTYX [Suspect]
     Active Substance: SECUKINUMAB
     Indication: Hidradenitis
     Dosage: 300 MG, QW
     Route: 058
     Dates: start: 20250106, end: 20250206

REACTIONS (4)
  - Nausea [Unknown]
  - Palpitations [Unknown]
  - Chest pain [Unknown]
  - Crying [Unknown]

NARRATIVE: CASE EVENT DATE: 20250206
